FAERS Safety Report 8125885-7 (Version None)
Quarter: 2012Q1

REPORT INFORMATION
  Report Type: 
  Country: None (occurrence: None)
  Receive Date: 20120209
  Receipt Date: 20120208
  Transmission Date: 20120608
  Serious: Yes (Other)
  Sender: FDA-Public Use
  Company Number: US-PFIZER INC-2012003919

PATIENT
  Sex: Male
  Weight: 83.9 kg

DRUGS (3)
  1. LIPITOR [Concomitant]
     Indication: BLOOD CHOLESTEROL INCREASED
     Dosage: UNK
  2. ALBUTEROL [Concomitant]
     Indication: ASTHMA
     Dosage: UNK
  3. LYRICA [Suspect]
     Indication: PAIN
     Dosage: 300 MG, 3X/DAY
     Route: 048
     Dates: start: 20100101

REACTIONS (3)
  - IMPAIRED WORK ABILITY [None]
  - PAIN [None]
  - FALL [None]
